FAERS Safety Report 23682585 (Version 3)
Quarter: 2024Q2

REPORT INFORMATION
  Report Type: Spontaneous
  Country: FR (occurrence: FR)
  Receive Date: 20240328
  Receipt Date: 20240417
  Transmission Date: 20240715
  Serious: Yes (Life-Threatening, Hospitalization, Other)
  Sender: FDA-Public Use
  Company Number: None

PATIENT
  Age: 58 Year
  Sex: Female
  Weight: 114 kg

DRUGS (11)
  1. CLINDAMYCIN [Suspect]
     Active Substance: CLINDAMYCIN
     Indication: Enterobacter infection
     Dosage: 3 DOSAGE FORM, QD
     Route: 048
     Dates: start: 20231114, end: 20231218
  2. MEROPENEM [Suspect]
     Active Substance: MEROPENEM
     Indication: Enterobacter infection
     Dosage: 2 GRAM, QD
     Route: 042
     Dates: start: 20231114, end: 20231218
  3. PANTOPRAZOLE [Suspect]
     Active Substance: PANTOPRAZOLE
     Dosage: 80 MILLIGRAM, QD
     Route: 048
     Dates: start: 20231206, end: 20231218
  4. ESOMEPRAZOLE [Concomitant]
     Active Substance: ESOMEPRAZOLE
     Dosage: UNK
  5. OXAZEPAM [Concomitant]
     Active Substance: OXAZEPAM
     Dosage: UNK
  6. BISOPROLOL FUMARATE [Concomitant]
     Active Substance: BISOPROLOL FUMARATE
     Dosage: UNK
  7. ALVITYL [BIOTIN;CALCIUM ASCORBATE;CALCIUM PANTOTHENATE;COLECALCIFEROL; [Concomitant]
     Dosage: UNK
  8. ACETAMINOPHEN [Concomitant]
     Active Substance: ACETAMINOPHEN
     Dosage: UNK
  9. AMLODIPINE [Concomitant]
     Active Substance: AMLODIPINE BESYLATE
     Dosage: UNK
  10. HEPARIN [Concomitant]
     Active Substance: HEPARIN SODIUM
     Dosage: UNK
  11. KARDEGIC [Concomitant]
     Active Substance: ASPIRIN DL-LYSINE
     Dosage: UNK

REACTIONS (4)
  - Hepatic cytolysis [Recovering/Resolving]
  - Agranulocytosis [Recovered/Resolved]
  - Eosinophilia [Recovered/Resolved]
  - Off label use [Unknown]

NARRATIVE: CASE EVENT DATE: 20231114
